FAERS Safety Report 5932403-8 (Version None)
Quarter: 2008Q4

REPORT INFORMATION
  Report Type: 
  Country: None (occurrence: None)
  Receive Date: 20081027
  Receipt Date: 20081027
  Transmission Date: 20090506
  Serious: No
  Sender: FDA-Public Use
  Company Number: None

PATIENT
  Age: 18 Year
  Sex: Male
  Weight: 138.3471 kg

DRUGS (1)
  1. TYLENOL [Suspect]
     Indication: HEADACHE
     Dosage: 2 CAPSULES ONCE PO
     Route: 048
     Dates: start: 20081025, end: 20081026

REACTIONS (2)
  - DEFORMITY [None]
  - PENIS DISORDER [None]
